FAERS Safety Report 6247694-6 (Version None)
Quarter: 2009Q2

REPORT INFORMATION
  Report Type: 
  Country: None (occurrence: None)
  Receive Date: 20090626
  Receipt Date: 20090619
  Transmission Date: 20091009
  Serious: Yes (Hospitalization)
  Sender: FDA-Public Use
  Company Number: US-ELI_LILLY_AND_COMPANY-US200906001497

PATIENT
  Sex: Female
  Weight: 60.771 kg

DRUGS (3)
  1. EVISTA [Suspect]
     Dosage: 60 MG, DAILY (1/D)
     Dates: start: 20071001
  2. FORTEO [Suspect]
     Dosage: UNK, UNK
     Dates: start: 20090101, end: 20090401
  3. CALCIUM W/VITAMIN D NOS [Concomitant]

REACTIONS (2)
  - ARTHRALGIA [None]
  - OSTEOARTHRITIS [None]
